FAERS Safety Report 24338863 (Version 1)
Quarter: 2024Q3

REPORT INFORMATION
  Report Type: Spontaneous
  Country: US (occurrence: US)
  Receive Date: 20240919
  Receipt Date: 20240919
  Transmission Date: 20241017
  Serious: Yes (Hospitalization)
  Sender: MYLAN
  Company Number: US-MYLANLABS-2024M1083286

PATIENT
  Age: 67 Year
  Sex: Female

DRUGS (2)
  1. METHOTREXATE [Suspect]
     Active Substance: METHOTREXATE
     Indication: Rheumatoid arthritis
     Dosage: 15 MILLIGRAM, QW
     Route: 048
     Dates: end: 2023
  2. FOLIC ACID [Suspect]
     Active Substance: FOLIC ACID
     Indication: Vitamin supplementation
     Dosage: 1 MILLIGRAM, QD
     Route: 048

REACTIONS (6)
  - Pancytopenia [Recovering/Resolving]
  - Stomatitis [Recovering/Resolving]
  - Toxicity to various agents [Recovering/Resolving]
  - Febrile neutropenia [Recovering/Resolving]
  - Enterococcal infection [Recovering/Resolving]
  - Treatment noncompliance [Unknown]

NARRATIVE: CASE EVENT DATE: 20230101
